FAERS Safety Report 16569550 (Version 7)
Quarter: 2019Q3

REPORT INFORMATION
  Report Type: Report from Study
  Country: AU (occurrence: AU)
  Receive Date: 20190715
  Receipt Date: 20190829
  Transmission Date: 20191004
  Serious: Yes (Hospitalization)
  Sender: FDA-Public Use
  Company Number: AU-ROCHE-2352064

PATIENT
  Age: 46 Year
  Sex: Female
  Weight: 59.6 kg

DRUGS (4)
  1. TALIMOGENE LAHERPAREPVEC [Suspect]
     Active Substance: TALIMOGENE LAHERPAREPVEC
     Indication: TRIPLE NEGATIVE BREAST CANCER
     Dosage: LAST DOSE PRIOR TO EVENT: 03/JUL/2019
     Route: 026
     Dates: start: 20190703
  2. PACLITAXEL. [Concomitant]
     Active Substance: PACLITAXEL
     Route: 065
     Dates: start: 20190529, end: 20190605
  3. PACLITAXEL. [Concomitant]
     Active Substance: PACLITAXEL
     Indication: TRIPLE NEGATIVE BREAST CANCER
     Route: 065
     Dates: start: 20181210, end: 20190211
  4. ATEZOLIZUMAB. [Suspect]
     Active Substance: ATEZOLIZUMAB
     Indication: TRIPLE NEGATIVE BREAST CANCER
     Dosage: LAST DOSE PRIOR TO EVENT: 04/JUL/2019 AT 11:25 HOURS
     Route: 042
     Dates: start: 20190704

REACTIONS (1)
  - Cytokine release syndrome [Recovered/Resolved]

NARRATIVE: CASE EVENT DATE: 20190703
